FAERS Safety Report 5967787-8 (Version None)
Quarter: 2008Q4

REPORT INFORMATION
  Report Type: 
  Country: None (occurrence: None)
  Receive Date: 20081126
  Receipt Date: 20081125
  Transmission Date: 20090506
  Serious: Yes (Other)
  Sender: FDA-Public Use
  Company Number: US-BAYER-200831305NA

PATIENT
  Age: 20 Year
  Sex: Female
  Weight: 104 kg

DRUGS (1)
  1. MIRENA [Suspect]
     Indication: CONTRACEPTION
     Route: 015
     Dates: start: 20060601, end: 20070601

REACTIONS (4)
  - AMENORRHOEA [None]
  - INFERTILITY FEMALE [None]
  - OVARIAN CYST [None]
  - PROCEDURAL PAIN [None]
